FAERS Safety Report 24307275 (Version 1)
Quarter: 2024Q3

REPORT INFORMATION
  Report Type: Spontaneous
  Country: US (occurrence: US)
  Receive Date: 20240911
  Receipt Date: 20240911
  Transmission Date: 20241017
  Serious: Yes (Hospitalization)
  Sender: MYLAN
  Company Number: US-MYLANLABS-2024M1081845

PATIENT
  Sex: Male

DRUGS (3)
  1. CALCITONIN SALMON [Suspect]
     Active Substance: CALCITONIN SALMON
     Indication: Hypercalciuria
     Dosage: UNK, BID; 4 UNITS/KG/DOSE, ON HOSPITALISATION DAY 20
     Route: 065
  2. CALCITONIN SALMON [Suspect]
     Active Substance: CALCITONIN SALMON
     Dosage: UNK, Q8H; DOSE INCREASED TO 6 UNITS/KG/DOSE
     Route: 065
  3. PEDIALYTE 60 [Concomitant]
     Indication: Dehydration
     Dosage: UNK
     Route: 065

REACTIONS (1)
  - Drug ineffective [Unknown]
